FAERS Safety Report 10086643 (Version 2)
Quarter: 2014Q2

REPORT INFORMATION
  Report Type: Spontaneous
  Country: GB (occurrence: GB)
  Receive Date: 20140418
  Receipt Date: 20140527
  Transmission Date: 20141212
  Serious: Yes (Death)
  Sender: FDA-Public Use
  Company Number: GB-PFIZER INC-2014109055

PATIENT
  Age: 81 Year
  Sex: Female
  Weight: 90 kg

DRUGS (16)
  1. PHENYTOIN SODIUM [Suspect]
     Indication: COMPLEX PARTIAL SEIZURES
     Dosage: 1800 MG UNIT DOSE 20MG/KG
     Route: 042
     Dates: start: 20131026
  2. AMLODIPINE [Concomitant]
     Dosage: UNK
  3. ATENOLOL [Concomitant]
     Dosage: UNK
  4. CLOPIDOGREL [Concomitant]
     Dosage: UNK
  5. DONEPEZIL [Concomitant]
     Dosage: UNK
  6. HUMULIN [Concomitant]
     Dosage: UNK
  7. LANSOPRAZOLE [Concomitant]
     Dosage: UNK
  8. LEVOTHYROXINE [Concomitant]
     Dosage: UNK
  9. METRONIDAZOLE [Concomitant]
     Dosage: UNK
  10. PARACETAMOL [Concomitant]
     Dosage: UNK
  11. SERTRALINE [Concomitant]
     Dosage: UNK
  12. SIMVASTATIN [Concomitant]
     Dosage: UNK
  13. VALPROATE SODIUM [Concomitant]
     Dosage: 250 MG, 2X/DAY
     Route: 042
  14. VALPROATE SODIUM [Concomitant]
     Dosage: 350 MG, 2X/DAY
     Route: 042
  15. DIAZEPAM [Concomitant]
     Dosage: 5 MG, SINGLE
     Route: 042
  16. SODIUM CHLORIDE [Concomitant]
     Dosage: 100 ML, UNK
     Dates: start: 20131026, end: 20131026

REACTIONS (2)
  - Cerebrovascular accident [Fatal]
  - Complex partial seizures [Fatal]
